FAERS Safety Report 25685811 (Version 1)
Quarter: 2025Q3

REPORT INFORMATION
  Report Type: Spontaneous
  Country: US (occurrence: US)
  Receive Date: 20250815
  Receipt Date: 20250815
  Transmission Date: 20251020
  Serious: Yes (Other)
  Sender: GILEAD
  Company Number: US-GILEAD-2025-0723734

PATIENT
  Age: 50 Year
  Sex: Female

DRUGS (2)
  1. TRODELVY [Suspect]
     Active Substance: SACITUZUMAB GOVITECAN-HZIY
     Indication: Triple negative breast cancer
     Dosage: UNK, Q1WK
     Route: 065
     Dates: start: 20240909
  2. TRODELVY [Suspect]
     Active Substance: SACITUZUMAB GOVITECAN-HZIY
     Dosage: 7.5 MG/KG, Q2WK
     Route: 065

REACTIONS (3)
  - Triple negative breast cancer [Recovered/Resolved]
  - Febrile neutropenia [Unknown]
  - Inappropriate schedule of product administration [Unknown]
